FAERS Safety Report 12215883 (Version 1)
Quarter: 2016Q1

REPORT INFORMATION
  Report Type: Spontaneous
  Country: AR (occurrence: AR)
  Receive Date: 20160328
  Receipt Date: 20160328
  Transmission Date: 20160526
  Serious: Yes (Other)
  Sender: FDA-Public Use
  Company Number: PHHY2016AR038947

PATIENT
  Age: 39 Year
  Sex: Male

DRUGS (4)
  1. CABERGOLINE. [Suspect]
     Active Substance: CABERGOLINE
     Indication: INSULIN-LIKE GROWTH FACTOR INCREASED
     Dosage: 0.5 MG, QW
     Route: 065
  2. CABERGOLINE. [Suspect]
     Active Substance: CABERGOLINE
     Indication: BLOOD GROWTH HORMONE INCREASED
  3. BROMOCRIPTINE [Suspect]
     Active Substance: BROMOCRIPTINE
     Indication: INSULIN-LIKE GROWTH FACTOR INCREASED
     Dosage: 3.75 MG, QD
     Route: 065
     Dates: start: 199612
  4. BROMOCRIPTINE [Suspect]
     Active Substance: BROMOCRIPTINE
     Indication: BLOOD GROWTH HORMONE INCREASED
     Dosage: 5 MG, QD
     Route: 065

REACTIONS (2)
  - Drug intolerance [Unknown]
  - Insulin-like growth factor increased [Unknown]
